FAERS Safety Report 5283925-7 (Version None)
Quarter: 2007Q1

REPORT INFORMATION
  Report Type: 
  Country: None (occurrence: None)
  Receive Date: 20070327
  Receipt Date: 20070317
  Transmission Date: 20070707
  Serious: Yes (Disabling)
  Sender: FDA-Public Use
  Company Number: TPA2007A00535

PATIENT
  Sex: Male

DRUGS (1)
  1. ROZEREM [Suspect]
     Dates: start: 20070301

REACTIONS (8)
  - ARTHRALGIA [None]
  - BACK PAIN [None]
  - CHILLS [None]
  - FATIGUE [None]
  - INFLUENZA [None]
  - JAUNDICE [None]
  - PYREXIA [None]
  - SICKLE CELL ANAEMIA [None]
